FAERS Safety Report 8256063-9 (Version None)
Quarter: 2012Q2

REPORT INFORMATION
  Report Type: 
  Country: None (occurrence: None)
  Receive Date: 20120403
  Receipt Date: 20120326
  Transmission Date: 20120825
  Serious: Yes (Hospitalization)
  Sender: FDA-Public Use
  Company Number: US-JNJFOC-20120213173

PATIENT
  Sex: Female
  Weight: 68.49 kg

DRUGS (2)
  1. INVEGA SUSTENNA [Suspect]
     Indication: SCHIZOPHRENIA
     Dosage: 20-MAY-2010 INITIATED VARYING DOSES BUT ON 234 MG SINCE SEP-2011
     Route: 030
     Dates: start: 20110901
  2. VITAMIN D [Concomitant]
     Route: 065

REACTIONS (1)
  - BLUNTED AFFECT [None]
